FAERS Safety Report 11127460 (Version 1)
Quarter: 2015Q2

REPORT INFORMATION
  Report Type: Spontaneous
  Country: US (occurrence: US)
  Receive Date: 20150521
  Receipt Date: 20150521
  Transmission Date: 20150821
  Serious: Yes (Hospitalization, Other)
  Sender: FDA-Public Use
  Company Number: US-PERRIGO-15US005134

PATIENT
  Age: 47 Year
  Sex: Female

DRUGS (1)
  1. IBUPROFEN RX 800MG 522 [Suspect]
     Active Substance: IBUPROFEN
     Indication: HEADACHE
     Dosage: 11,200-44,800 MG WEEKLY
     Route: 048

REACTIONS (2)
  - Renal tubular acidosis [Recovered/Resolved]
  - Hyperammonaemia [Recovering/Resolving]
